FAERS Safety Report 9843632 (Version 1)
Quarter: 2013Q4

REPORT INFORMATION
  Report Type: Spontaneous
  Country: US (occurrence: None)
  Receive Date: 20131219
  Receipt Date: 20131219
  Transmission Date: 20140711
  Serious: Yes (Death)
  Sender: FDA-Public Use
  Company Number: 163-20785-13011806

PATIENT
  Age: 65 Year
  Sex: Female

DRUGS (12)
  1. THALOMID (THALIDOMIDE) (50 MILLIGRAM, CAPSULES) [Suspect]
     Indication: PLASMA CELL MYELOMA
     Route: 048
     Dates: start: 20120724
  2. DEXAMETHASONE (DEXAMETHASONE) [Suspect]
  3. AMLODIPINE (AMLODIPINE) [Suspect]
  4. ASA (ACETYLSALICYLIC ACID) [Suspect]
  5. CITALOPRAM (CITALOPRAM) [Suspect]
  6. CLONIDINE (CLONIDINE) [Suspect]
  7. IMDUR [Suspect]
  8. LABETALOL (LABETALOL) [Suspect]
  9. LANTUS (INSULIN GLARGINE) [Suspect]
  10. LISINOPRIL (LISINOPRIL) [Suspect]
  11. MINOXIDIL (MINOXIDIL) [Suspect]
  12. SODIUM BICARBONATE (SODIUM BICARBONATE) [Concomitant]

REACTIONS (1)
  - Cardiac arrest [None]
